FAERS Safety Report 4810214-4 (Version None)
Quarter: 2005Q4

REPORT INFORMATION
  Report Type: 
  Country: None (occurrence: None)
  Receive Date: 20051024
  Receipt Date: 20051024
  Transmission Date: 20060501
  Serious: Yes (Other)
  Sender: FDA-Public Use
  Company Number: DE_051017195

PATIENT
  Age: 65 Year
  Sex: Male

DRUGS (3)
  1. CYMBALTA [Suspect]
     Indication: DEPRESSION
     Dosage: 60 MG DAY
     Dates: start: 20040901, end: 20050301
  2. QUETIAPINE FUMARATE [Concomitant]
  3. LITHIUM CARBONATE [Concomitant]

REACTIONS (3)
  - DRUG LEVEL DECREASED [None]
  - PENIS DISORDER [None]
  - PEYRONIE'S DISEASE [None]
